FAERS Safety Report 17414859 (Version 3)
Quarter: 2020Q2

REPORT INFORMATION
  Report Type: Spontaneous
  Country: DE (occurrence: DE)
  Receive Date: 20200213
  Receipt Date: 20200413
  Transmission Date: 20200713
  Serious: Yes (Other)
  Sender: FDA-Public Use
  Company Number: DE-LEO PHARMA-328058

PATIENT
  Age: 53 Year
  Sex: Male
  Weight: 90 kg

DRUGS (2)
  1. PICATO [Suspect]
     Active Substance: INGENOL MEBUTATE
     Indication: ACTINIC KERATOSIS
     Dosage: NOT REPORTED
     Route: 061
     Dates: start: 201503, end: 201503
  2. PICATO [Suspect]
     Active Substance: INGENOL MEBUTATE
     Indication: ACTINIC KERATOSIS
     Dosage: NOT REPORTED
     Route: 061
     Dates: start: 201711, end: 201711

REACTIONS (2)
  - Inappropriate schedule of product administration [Unknown]
  - Squamous cell carcinoma of skin [Unknown]

NARRATIVE: CASE EVENT DATE: 202001
